FAERS Safety Report 6728482-0 (Version None)
Quarter: 2010Q2

REPORT INFORMATION
  Report Type: 
  Country: None (occurrence: None)
  Receive Date: 20100517
  Receipt Date: 20100503
  Transmission Date: 20101027
  Serious: Yes (Hospitalization)
  Sender: FDA-Public Use
  Company Number: DE-MYLANLABS-2010S1007871

PATIENT
  Age: 70 Year
  Sex: Male

DRUGS (18)
  1. FENTANYL [Suspect]
     Indication: PAIN
     Route: 048
     Dates: start: 20091201
  2. DICLOFENAC [Interacting]
     Indication: OSTEOARTHRITIS
     Route: 048
  3. CODEINE SULFATE [Suspect]
     Indication: BRONCHIAL CARCINOMA
     Route: 048
     Dates: start: 20100101, end: 20100311
  4. MORPHINE SULFATE [Suspect]
     Indication: PAIN
     Dosage: MAX. ALLE 8 H
     Route: 048
     Dates: start: 20100101
  5. TORSEMIDE [Interacting]
     Indication: HYPERTENSION
     Route: 048
     Dates: start: 20000101
  6. CANDESARTAN CILEXETIL [Concomitant]
     Indication: CARDIAC FAILURE
     Dosage: TAGESSCHEMA: 8-0-16
     Route: 048
     Dates: start: 20080101
  7. ASPIRIN [Concomitant]
     Indication: CORONARY ARTERY DISEASE
     Route: 048
     Dates: start: 19980101
  8. FLUVASTATIN SODIUM [Concomitant]
     Indication: HYPERLIPIDAEMIA
     Route: 048
     Dates: start: 19980101
  9. NITROSPRAY [Concomitant]
     Indication: CORONARY ARTERY DISEASE
     Route: 048
     Dates: start: 19980101
  10. ALFACALCIDOL [Concomitant]
     Indication: RENAL OSTEODYSTROPHY
     Route: 048
     Dates: start: 20080101
  11. EPOETIN BETA [Concomitant]
     Indication: NEPHROGENIC ANAEMIA
     Dosage: SAMSTAGS
     Route: 058
     Dates: start: 20080101
  12. ALLOPURINOL [Concomitant]
     Indication: RENAL IMPAIRMENT
     Route: 048
     Dates: start: 20080101
  13. LEVOTHYROXINE SODIUM [Concomitant]
     Indication: HYPOTHYROIDISM
     Route: 048
  14. BISOPROLOL [Concomitant]
     Indication: CORONARY ARTERY DISEASE
     Route: 048
     Dates: start: 19980101
  15. PANTOPRAZOLE [Concomitant]
     Indication: PROPHYLAXIS AGAINST GASTROINTESTINAL ULCER
     Route: 048
     Dates: start: 19980101
  16. ACETYLCYSTEINE [Concomitant]
     Indication: BRONCHIAL CARCINOMA
     Route: 048
     Dates: start: 20090101
  17. DEXAMETHASONE SODIUM PHOSPHATE [Concomitant]
     Indication: BRONCHIAL CARCINOMA
     Route: 048
     Dates: start: 20090401
  18. NOVAMINSULFON [Concomitant]
     Indication: PAIN
     Route: 048
     Dates: start: 20090101

REACTIONS (3)
  - DRUG INTERACTION [None]
  - RENAL FAILURE ACUTE [None]
  - SOMNOLENCE [None]
